FAERS Safety Report 23283870 (Version 1)
Quarter: 2023Q4

REPORT INFORMATION
  Report Type: Spontaneous
  Country: US (occurrence: US)
  Receive Date: 20231211
  Receipt Date: 20231211
  Transmission Date: 20240109
  Serious: Yes (Disabling)
  Sender: FDA-Public Use
  Company Number: US-AMGEN-USASP2023217481

PATIENT
  Age: 80 Year
  Sex: Female

DRUGS (2)
  1. EVENITY [Suspect]
     Active Substance: ROMOSOZUMAB-AQQG
     Indication: Bone disorder
     Dosage: 210 MILLIGRAM, QMO
     Route: 058
     Dates: start: 202309, end: 2023
  2. EVENITY [Suspect]
     Active Substance: ROMOSOZUMAB-AQQG
     Indication: Off label use

REACTIONS (2)
  - Pain in jaw [Unknown]
  - Off label use [Unknown]

NARRATIVE: CASE EVENT DATE: 20230101
